FAERS Safety Report 6959492-6 (Version None)
Quarter: 2010Q3

REPORT INFORMATION
  Report Type: 
  Country: None (occurrence: None)
  Receive Date: 20100827
  Receipt Date: 20100722
  Transmission Date: 20110219
  Serious: Yes (Other)
  Sender: FDA-Public Use
  Company Number: 00000278

PATIENT
  Sex: Female

DRUGS (3)
  1. ZOLPIDEM TARTRATE [Suspect]
     Indication: SLEEP DISORDER
     Dosage: 1
     Dates: start: 20100622, end: 20100705
  2. SEROQUEL [Concomitant]
  3. XANAX [Concomitant]

REACTIONS (12)
  - ANXIETY [None]
  - DYSPNOEA [None]
  - EYE PAIN [None]
  - FALL [None]
  - HEADACHE [None]
  - LOSS OF CONSCIOUSNESS [None]
  - MALAISE [None]
  - MIGRAINE [None]
  - NIGHTMARE [None]
  - PARALYSIS [None]
  - POLLAKIURIA [None]
  - TREMOR [None]
